FAERS Safety Report 26136934 (Version 2)
Quarter: 2025Q4

REPORT INFORMATION
  Report Type: Spontaneous
  Country: US (occurrence: US)
  Receive Date: 20251209
  Receipt Date: 20251226
  Transmission Date: 20260118
  Serious: Yes (Other)
  Sender: AMGEN
  Company Number: US-AMGEN-USASP2025240423

PATIENT
  Age: 61 Year
  Sex: Female

DRUGS (10)
  1. REPATHA [Suspect]
     Active Substance: EVOLOCUMAB
     Indication: Product used for unknown indication
     Dosage: UNK
     Route: 058
  2. REPATHA [Suspect]
     Active Substance: EVOLOCUMAB
     Dosage: UNK
     Route: 058
  3. ROSUVASTATIN [Concomitant]
     Active Substance: ROSUVASTATIN
     Indication: Blood pressure abnormal
     Dosage: UNK (5 YEARS AGO)
     Route: 065
  4. ROSUVASTATIN [Concomitant]
     Active Substance: ROSUVASTATIN
  5. ROSUVASTATIN [Concomitant]
     Active Substance: ROSUVASTATIN
  6. ROSUVASTATIN [Concomitant]
     Active Substance: ROSUVASTATIN
  7. LOSARTAN [Concomitant]
     Active Substance: LOSARTAN
     Indication: Blood pressure abnormal
     Dosage: UNK (7 YEARS AGO)
     Route: 065
  8. LOSARTAN [Concomitant]
     Active Substance: LOSARTAN
  9. LOSARTAN [Concomitant]
     Active Substance: LOSARTAN
  10. LOSARTAN [Concomitant]
     Active Substance: LOSARTAN

REACTIONS (8)
  - Carpal tunnel syndrome [Unknown]
  - Diabetes mellitus [Unknown]
  - Injection site urticaria [Not Recovered/Not Resolved]
  - Injection site bruising [Not Recovered/Not Resolved]
  - Injection site pain [Not Recovered/Not Resolved]
  - Device difficult to use [Unknown]
  - Drug dose omission by device [Unknown]
  - Increased tendency to bruise [Unknown]

NARRATIVE: CASE EVENT DATE: 20241230
